FAERS Safety Report 4279342-9 (Version None)
Quarter: 2004Q1

REPORT INFORMATION
  Report Type: 
  Country: None (occurrence: None)
  Receive Date: 20040126
  Receipt Date: 20040126
  Transmission Date: 20041129
  Serious: Yes (Life-Threatening, Hospitalization)
  Sender: FDA-Public Use
  Company Number: None

PATIENT
  Age: 56 Year
  Sex: Female
  Weight: 64.8644 kg

DRUGS (1)
  1. DELSYM [Suspect]
     Dosage: 2T. /12 ORAL ORAL
     Route: 048

REACTIONS (11)
  - BLOOD PRESSURE INCREASED [None]
  - COLD SWEAT [None]
  - DISORIENTATION [None]
  - ECONOMIC PROBLEM [None]
  - FALL [None]
  - FEELING ABNORMAL [None]
  - GAIT DISTURBANCE [None]
  - HEART RATE INCREASED [None]
  - MOVEMENT DISORDER [None]
  - NAUSEA [None]
  - PALLOR [None]
